FAERS Safety Report 10726366 (Version 2)
Quarter: 2015Q1

REPORT INFORMATION
  Report Type: Spontaneous
  Country: US (occurrence: US)
  Receive Date: 20150121
  Receipt Date: 20150204
  Transmission Date: 20150721
  Serious: No
  Sender: FDA-Public Use
  Company Number: US-PFIZER INC-2015019091

PATIENT
  Age: 60 Year
  Sex: Male
  Weight: 93 kg

DRUGS (14)
  1. VALACICLOVIR HYDROCHLORIDE [Concomitant]
     Active Substance: VALACYCLOVIR HYDROCHLORIDE
     Dosage: 500 MG, 1X/DAY
  2. ZOLOFT [Concomitant]
     Active Substance: SERTRALINE HYDROCHLORIDE
     Indication: ANXIETY
     Dosage: UNK
  3. LYRICA [Suspect]
     Active Substance: PREGABALIN
     Indication: FIBROMYALGIA
     Dosage: 50 MG, 3X/DAY
     Dates: start: 201412, end: 20150109
  4. METFORMIN HCL [Concomitant]
     Active Substance: METFORMIN HYDROCHLORIDE
     Dosage: 500 MG, DAILY
  5. AMBIEN [Concomitant]
     Active Substance: ZOLPIDEM TARTRATE
     Dosage: 10MG ONE OR TWO AT NIGHT/BEDTIME
  6. ZOLOFT [Concomitant]
     Active Substance: SERTRALINE HYDROCHLORIDE
     Indication: DEPRESSION
  7. AMITRIPTYLINE [Concomitant]
     Active Substance: AMITRIPTYLINE
     Indication: DEPRESSION
     Dosage: 50 MG ONE OR TWO TIMES A NIGHT
  8. AMITRIPTYLINE [Concomitant]
     Active Substance: AMITRIPTYLINE
     Indication: SLEEP DISORDER
  9. POTASSIUM [Concomitant]
     Active Substance: POTASSIUM
     Dosage: 10 MEQ, 2X/DAY
  10. OXYMORPHONE [Concomitant]
     Active Substance: OXYMORPHONE
     Indication: PAIN
     Dosage: 20 MG, 3X/DAY
  11. PRAVASTATIN [Concomitant]
     Active Substance: PRAVASTATIN\PRAVASTATIN SODIUM
     Dosage: 40 MG, 1X/DAY (ONE IN EVENING AT DINNER OR BEDTIME)
  12. WELLBUTRIN SR [Concomitant]
     Active Substance: BUPROPION HYDROCHLORIDE
     Dosage: 150 MG, 1X/DAY (EVERY MORNING)
  13. VALIUM [Concomitant]
     Active Substance: DIAZEPAM
     Dosage: 5 MG THREE TIMES A DAY, HE TOOK AS NEEDED
  14. NEXIUM [Concomitant]
     Active Substance: ESOMEPRAZOLE MAGNESIUM
     Dosage: 22.3 MG, 1X/DAY
     Dates: start: 201411

REACTIONS (1)
  - Dry mouth [Recovering/Resolving]
